FAERS Safety Report 9014563 (Version 1)
Quarter: 2013Q1

REPORT INFORMATION
  Report Type: Spontaneous
  Country: US (occurrence: US)
  Receive Date: 20130115
  Receipt Date: 20130115
  Transmission Date: 20140127
  Serious: Yes (Hospitalization)
  Sender: FDA-Public Use
  Company Number: US-009507513-1301USA002597

PATIENT
  Age: 15 Year
  Sex: Male

DRUGS (8)
  1. MONTELUKAST SODIUM [Suspect]
  2. ALBUTEROL [Suspect]
     Dosage: RESPIRATORY (INHALATION)
  3. FLUTICASONE PROPIONATE [Suspect]
     Route: 045
  4. LORATADINE [Suspect]
  5. FLUTICASONE PROPIONATE (+) SALMETEROL XINAFOATE [Suspect]
     Dosage: 100/100, RESPIRATORY (INHALATION)
  6. XOLAIR [Suspect]
     Dosage: 3 DOSES (300 MG) DURING A 6-WEEK PERIOD BEFORE ADMISSION
  7. IPRATROPIUM BROMIDE [Suspect]
     Dosage: RESPIRATORY (INHALATION)
  8. RANITIDINE [Suspect]

REACTIONS (2)
  - Drug ineffective [Unknown]
  - Asthma [Unknown]
